FAERS Safety Report 20721877 (Version 1)
Quarter: 2022Q2

REPORT INFORMATION
  Report Type: Report from Study
  Country: US (occurrence: None)
  Receive Date: 20220418
  Receipt Date: 20220418
  Transmission Date: 20220721
  Serious: Yes (Death, Hospitalization)
  Sender: FDA-Public Use
  Company Number: US-Eisai Medical Research-EC-2022-112922

PATIENT
  Age: 63 Year
  Sex: Female
  Weight: 64.4 kg

DRUGS (1)
  1. LENVIMA [Suspect]
     Active Substance: LENVATINIB
     Indication: Benign renal neoplasm
     Route: 048
     Dates: start: 20211103, end: 202203

REACTIONS (2)
  - Blood pressure abnormal [Unknown]
  - Death [Fatal]

NARRATIVE: CASE EVENT DATE: 20220301
